FAERS Safety Report 17362852 (Version 3)
Quarter: 2020Q1

REPORT INFORMATION
  Report Type: Spontaneous
  Country: DE (occurrence: DE)
  Receive Date: 20200203
  Receipt Date: 20200309
  Transmission Date: 20200409
  Serious: Yes (Hospitalization, Other)
  Sender: FDA-Public Use
  Company Number: DE-MYLANLABS-2020M1011315

PATIENT
  Age: 66 Year
  Sex: Male
  Weight: 96 kg

DRUGS (1)
  1. SILDENAFIL. [Suspect]
     Active Substance: SILDENAFIL
     Indication: ERECTILE DYSFUNCTION
     Dosage: 100 MILLIGRAM, PRN (DAILY DOSE: 100 MG MILLGRAM(S) EVERY AS NECESSARY)

REACTIONS (2)
  - Deep vein thrombosis [Unknown]
  - Venous thrombosis [Unknown]

NARRATIVE: CASE EVENT DATE: 201905
